FAERS Safety Report 22626925 (Version 1)
Quarter: 2023Q2

REPORT INFORMATION
  Report Type: Spontaneous
  Country: US (occurrence: US)
  Receive Date: 20230622
  Receipt Date: 20230622
  Transmission Date: 20230721
  Serious: Yes (Other)
  Sender: FDA-Public Use
  Company Number: US-BRISTOL-MYERS SQUIBB COMPANY-2023-085950

PATIENT
  Age: 69 Year
  Sex: Female

DRUGS (1)
  1. REVLIMID [Suspect]
     Active Substance: LENALIDOMIDE
     Indication: Plasma cell myeloma
     Dosage: FREQ: NEVER FILLED
     Route: 048
     Dates: start: 202112

REACTIONS (7)
  - Product dose omission issue [Recovered/Resolved]
  - Platelet count decreased [Recovering/Resolving]
  - Seasonal allergy [Recovering/Resolving]
  - Somnolence [Recovering/Resolving]
  - Depression [Recovering/Resolving]
  - Pain [Recovering/Resolving]
  - Fatigue [Recovering/Resolving]
